FAERS Safety Report 7789929-4 (Version None)
Quarter: 2011Q3

REPORT INFORMATION
  Report Type: 
  Country: None (occurrence: None)
  Receive Date: 20110930
  Receipt Date: 20110225
  Transmission Date: 20111222
  Serious: No
  Sender: FDA-Public Use
  Company Number: US-ASTRAZENECA-2011SE11135

PATIENT
  Age: 613 Month
  Sex: Female

DRUGS (1)
  1. ARIMIDEX [Suspect]
     Indication: BREAST CANCER
     Route: 048
     Dates: start: 20101201

REACTIONS (4)
  - PAIN IN EXTREMITY [None]
  - HYPOKINESIA [None]
  - IMPAIRED WORK ABILITY [None]
  - BREAST PAIN [None]
